FAERS Safety Report 7643083-8 (Version None)
Quarter: 2011Q3

REPORT INFORMATION
  Report Type: 
  Country: None (occurrence: None)
  Receive Date: 20110728
  Receipt Date: 20110720
  Transmission Date: 20111222
  Serious: Yes (Other)
  Sender: FDA-Public Use
  Company Number: US-ASTRAZENECA-2011SE43222

PATIENT
  Age: 28 Year
  Sex: Female
  Weight: 68 kg

DRUGS (8)
  1. SYMBICORT [Suspect]
     Indication: CHRONIC OBSTRUCTIVE PULMONARY DISEASE
     Dosage: 160/4.5 MCG, TWO PUFFS TWICE DAILY
     Route: 055
     Dates: start: 20100101
  2. ASPIRIN [Concomitant]
  3. LIPITOR [Concomitant]
  4. APRAZALONE [Concomitant]
  5. VERAPAMIL [Concomitant]
  6. MULTI-VITAMIN [Concomitant]
  7. PROAIR HFA [Concomitant]
  8. LANSOPRAZOLE [Concomitant]
     Indication: GASTRIC DISORDER

REACTIONS (4)
  - CATARACT OPERATION [None]
  - GLAUCOMA [None]
  - CATARACT [None]
  - VISUAL IMPAIRMENT [None]
